FAERS Safety Report 14384716 (Version 2)
Quarter: 2018Q1

REPORT INFORMATION
  Report Type: Spontaneous
  Country: SE (occurrence: SE)
  Receive Date: 20180115
  Receipt Date: 20180305
  Transmission Date: 20180509
  Serious: Yes (Disabling)
  Sender: FDA-Public Use
  Company Number: SE-JNJFOC-20180112784

PATIENT
  Age: 41 Year
  Sex: Female
  Weight: 52 kg

DRUGS (4)
  1. LERGIGAN COMP [Concomitant]
     Active Substance: CAFFEINE\EPHEDRINE\PROMETHAZINE
     Route: 065
  2. KALCIPOS [Concomitant]
     Active Substance: CALCIUM CARBONATE
     Route: 065
  3. HALDOL [Suspect]
     Active Substance: HALOPERIDOL
     Indication: TIC
     Dosage: 2MG- 0.5 MG
     Route: 065
     Dates: start: 19950101, end: 20171110
  4. HALDOL [Suspect]
     Active Substance: HALOPERIDOL
     Indication: TOURETTE^S DISORDER
     Dosage: 2MG- 0.5 MG
     Route: 065
     Dates: start: 19950101, end: 20171110

REACTIONS (4)
  - Product use in unapproved indication [Unknown]
  - Hypnopompic hallucination [Unknown]
  - Off label use [Unknown]
  - Hypnagogic hallucination [Unknown]

NARRATIVE: CASE EVENT DATE: 19950101
